FAERS Safety Report 6408495-9 (Version None)
Quarter: 2009Q4

REPORT INFORMATION
  Report Type: 
  Country: None (occurrence: None)
  Receive Date: 20091021
  Receipt Date: 20091014
  Transmission Date: 20100525
  Serious: Yes (Death, Hospitalization, Other)
  Sender: FDA-Public Use
  Company Number: PHEH2009US07662

PATIENT
  Sex: Female

DRUGS (8)
  1. EXJADE [Suspect]
     Indication: BLOOD DISORDER
     Dosage: 125 MG THREE TIMES WEEKLY (M/W/F)
     Route: 048
     Dates: start: 20090506
  2. EXJADE [Suspect]
     Indication: MYELODYSPLASTIC SYNDROME
  3. THEOPHYLLINE [Suspect]
  4. PHENOTHIAZINE [Suspect]
  5. VIDAZA [Suspect]
  6. TRICYCLIC ANTIDEPRESSANTS [Concomitant]
  7. ANTIHISTAMINES [Concomitant]
  8. ANTIARRHYTHMICS, CLASS I AND III [Concomitant]

REACTIONS (27)
  - ABDOMINAL PAIN [None]
  - ABDOMINAL TENDERNESS [None]
  - ACUTE LEUKAEMIA [None]
  - ANOXIA [None]
  - ARRHYTHMIA [None]
  - ASTHENIA [None]
  - ATRIAL TACHYCARDIA [None]
  - BONE PAIN [None]
  - COAGULOPATHY [None]
  - DRUG INEFFECTIVE [None]
  - EPISTAXIS [None]
  - ERYTHROLEUKAEMIA [None]
  - HYPERHIDROSIS [None]
  - HYPOVOLAEMIA [None]
  - LUNG INFILTRATION [None]
  - LYMPHOMA [None]
  - MENTAL STATUS CHANGES [None]
  - MOUTH HAEMORRHAGE [None]
  - NAUSEA [None]
  - PNEUMONIA ASPIRATION [None]
  - PULMONARY HAEMORRHAGE [None]
  - PYREXIA [None]
  - REFRACTORY ANAEMIA [None]
  - SEPSIS [None]
  - TACHYPNOEA [None]
  - THROMBOCYTOPENIA [None]
  - UPPER GASTROINTESTINAL HAEMORRHAGE [None]
